FAERS Safety Report 25127805 (Version 1)
Quarter: 2025Q1

REPORT INFORMATION
  Report Type: Spontaneous
  Country: RO (occurrence: RO)
  Receive Date: 20250327
  Receipt Date: 20250327
  Transmission Date: 20250408
  Serious: Yes (Other)
  Sender: IMMUNOCORE
  Company Number: RO-IMMUNOCORE, LTD.-2025-IMC-003816

PATIENT

DRUGS (1)
  1. KIMMTRAK [Suspect]
     Active Substance: TEBENTAFUSP-TEBN
     Indication: Metastatic ocular melanoma
     Dates: start: 202401

REACTIONS (2)
  - Metastases to liver [Unknown]
  - Therapeutic embolisation [Unknown]
